FAERS Safety Report 20634446 (Version 2)
Quarter: 2023Q1

REPORT INFORMATION
  Report Type: Report from Study
  Country: US (occurrence: US)
  Receive Date: 20220325
  Receipt Date: 20230120
  Transmission Date: 20230418
  Serious: Yes (Hospitalization)
  Sender: FDA-Public Use
  Company Number: US-ACADIA PHARMACEUTICALS INC.-ACA-2022-PIM-000773

PATIENT
  Sex: Male

DRUGS (19)
  1. NUPLAZID [Suspect]
     Active Substance: PIMAVANSERIN TARTRATE
     Indication: Parkinson^s disease
     Dosage: 10 MILLIGRAM, QD
     Route: 048
  2. NUPLAZID [Suspect]
     Active Substance: PIMAVANSERIN TARTRATE
     Indication: Hallucination
     Dosage: 34 MILLIGRAM, QD
     Route: 065
     Dates: start: 202108
  3. NUPLAZID [Suspect]
     Active Substance: PIMAVANSERIN TARTRATE
     Indication: Delusion
  4. NUPLAZID [Suspect]
     Active Substance: PIMAVANSERIN TARTRATE
     Indication: Parkinson^s disease psychosis
  5. PROSCAR [Concomitant]
     Active Substance: FINASTERIDE
  6. PRAVASTATIN [Concomitant]
     Active Substance: PRAVASTATIN
  7. NITROFURANTOIN [Concomitant]
     Active Substance: NITROFURANTOIN
  8. PREGABALIN [Concomitant]
     Active Substance: PREGABALIN
  9. RIVASTIGMINE [Concomitant]
     Active Substance: RIVASTIGMINE
  10. TYLENOL [Concomitant]
     Active Substance: ACETAMINOPHEN
  11. ZOLPIDEM [Concomitant]
     Active Substance: ZOLPIDEM TARTRATE
  12. MAGNESIUM [Concomitant]
     Active Substance: MAGNESIUM
  13. VITAMIN C [Concomitant]
     Active Substance: ASCORBIC ACID
  14. MIRALAX [Concomitant]
     Active Substance: POLYETHYLENE GLYCOL 3350
  15. MELATONIN [Concomitant]
     Active Substance: MELATONIN
  16. IRON [Concomitant]
     Active Substance: IRON
  17. VITAMIN B12 [Concomitant]
     Active Substance: CYANOCOBALAMIN
  18. PROBIOTICS NOS [Concomitant]
     Active Substance: PROBIOTICS NOS
  19. LEVODOPA [Concomitant]
     Active Substance: LEVODOPA

REACTIONS (6)
  - Blood potassium decreased [Unknown]
  - Claustrophobia [Not Recovered/Not Resolved]
  - Insomnia [Unknown]
  - Arthralgia [Unknown]
  - Confusional state [Unknown]
  - Constipation [Unknown]
